FAERS Safety Report 18505263 (Version 30)
Quarter: 2023Q1

REPORT INFORMATION
  Report Type: Other
  Country: AR (occurrence: AR)
  Receive Date: 20201116
  Receipt Date: 20230328
  Transmission Date: 20230418
  Serious: Yes (Hospitalization, Other)
  Sender: FDA-Public Use
  Company Number: AR-002147023-NVSC2020AR297872

PATIENT
  Age: 54 Year
  Sex: Female

DRUGS (21)
  1. XOLAIR [Suspect]
     Active Substance: OMALIZUMAB
     Indication: Asthma
     Dosage: 900 MG, EVERY 4 WEEKS
     Route: 058
     Dates: start: 20190811
  2. XOLAIR [Suspect]
     Active Substance: OMALIZUMAB
     Dosage: 1 DOSAGE FORM, BIW (STARTED 2 YEARS AGO)
     Route: 058
  3. XOLAIR [Suspect]
     Active Substance: OMALIZUMAB
     Dosage: 900 MG, EVERY 4 WEEKS
     Route: 058
     Dates: start: 20200801
  4. XOLAIR [Suspect]
     Active Substance: OMALIZUMAB
     Dosage: 450 MG, EVERY 4 WEEKS
     Route: 058
     Dates: start: 20200810
  5. XOLAIR [Suspect]
     Active Substance: OMALIZUMAB
     Dosage: 900 MG, QMO
     Route: 058
  6. XOLAIR [Suspect]
     Active Substance: OMALIZUMAB
     Dosage: 450 MG, BIW
     Route: 058
     Dates: start: 20200811
  7. XOLAIR [Suspect]
     Active Substance: OMALIZUMAB
     Dosage: 900 MG, QMO
     Route: 058
  8. XOLAIR [Suspect]
     Active Substance: OMALIZUMAB
     Dosage: 600 MG, EVERY 4 WEEKS
     Route: 058
  9. XOLAIR [Suspect]
     Active Substance: OMALIZUMAB
     Dosage: 900 MG, BIW
     Route: 058
  10. XOLAIR [Suspect]
     Active Substance: OMALIZUMAB
     Dosage: 450 MG
     Route: 058
  11. XOLAIR [Suspect]
     Active Substance: OMALIZUMAB
     Dosage: 600 MG
     Route: 058
  12. XOLAIR [Suspect]
     Active Substance: OMALIZUMAB
     Dosage: 450 MG
     Route: 058
  13. XOLAIR [Suspect]
     Active Substance: OMALIZUMAB
     Dosage: 900 MG
     Route: 058
  14. XOLAIR [Suspect]
     Active Substance: OMALIZUMAB
     Dosage: 900 MG, EVERY 4 WEEKS
     Route: 058
  15. XOLAIR [Suspect]
     Active Substance: OMALIZUMAB
     Dosage: 450 MG, BIW
     Route: 058
  16. XOLAIR [Suspect]
     Active Substance: OMALIZUMAB
     Dosage: 900 MG, EVERY 4 WEEKS
     Route: 058
     Dates: end: 20210407
  17. XOLAIR [Suspect]
     Active Substance: OMALIZUMAB
     Dosage: 450 MG, BIW
     Route: 058
     Dates: start: 20210811
  18. XOLAIR [Suspect]
     Active Substance: OMALIZUMAB
     Dosage: 900 MG, QMO
     Route: 058
     Dates: start: 20210811
  19. XOLAIR [Suspect]
     Active Substance: OMALIZUMAB
     Dosage: 450 MG, QMO
     Route: 058
     Dates: start: 202212
  20. XOLAIR [Suspect]
     Active Substance: OMALIZUMAB
     Dosage: 150 MG, QMO
     Route: 058
     Dates: start: 20200812
  21. ALBUTEROL [Concomitant]
     Active Substance: ALBUTEROL

REACTIONS (40)
  - Asthmatic crisis [Not Recovered/Not Resolved]
  - COVID-19 [Unknown]
  - Bronchospasm [Unknown]
  - Product dose omission issue [Unknown]
  - Respiratory disorder [Not Recovered/Not Resolved]
  - Pneumonia [Recovering/Resolving]
  - Dysphonia [Unknown]
  - Diabetes mellitus [Unknown]
  - Asphyxia [Unknown]
  - Asthma [Unknown]
  - Productive cough [Unknown]
  - Peripheral swelling [Unknown]
  - Swelling face [Unknown]
  - Hypokinesia [Unknown]
  - Aphasia [Not Recovered/Not Resolved]
  - Illness [Unknown]
  - Gait disturbance [Unknown]
  - Pain [Unknown]
  - Hand fracture [Unknown]
  - Malaise [Unknown]
  - Influenza [Not Recovered/Not Resolved]
  - Pyrexia [Unknown]
  - Sputum discoloured [Unknown]
  - Oxygen saturation decreased [Unknown]
  - Chills [Unknown]
  - Suspected COVID-19 [Unknown]
  - Oropharyngeal pain [Unknown]
  - Vomiting [Not Recovered/Not Resolved]
  - Nasopharyngitis [Unknown]
  - Back pain [Not Recovered/Not Resolved]
  - Wrist fracture [Unknown]
  - Fall [Unknown]
  - Pain in extremity [Unknown]
  - Feeling abnormal [Unknown]
  - Initial insomnia [Unknown]
  - Fatigue [Unknown]
  - Headache [Unknown]
  - Product availability issue [Unknown]
  - Incorrect dose administered [Unknown]
  - Drug ineffective [Unknown]

NARRATIVE: CASE EVENT DATE: 20200925
